FAERS Safety Report 4572424-3 (Version None)
Quarter: 2005Q1

REPORT INFORMATION
  Report Type: 
  Country: None (occurrence: None)
  Receive Date: 20050207
  Receipt Date: 20050126
  Transmission Date: 20050727
  Serious: Yes (Other)
  Sender: FDA-Public Use
  Company Number: FR-GLAXOSMITHKLINE-B0369088A

PATIENT
  Age: 62 Year
  Sex: Female

DRUGS (6)
  1. AVANDIA [Suspect]
     Route: 048
     Dates: start: 20040701
  2. DAONIL [Concomitant]
     Route: 048
  3. GLUCOPHAGE [Concomitant]
     Route: 048
  4. LIPANTHYL [Concomitant]
     Route: 048
  5. ALDACTAZINE [Concomitant]
     Route: 048
  6. LEVOTHYROX [Concomitant]
     Route: 048

REACTIONS (2)
  - ANAEMIA [None]
  - BLOOD IRON DECREASED [None]
